FAERS Safety Report 20737272 (Version 2)
Quarter: 2022Q2

REPORT INFORMATION
  Report Type: Spontaneous
  Country: CZ (occurrence: CZ)
  Receive Date: 20220421
  Receipt Date: 20220617
  Transmission Date: 20220720
  Serious: Yes (Other)
  Sender: FDA-Public Use
  Company Number: CZ-BIOGEN-2022BI01114819

PATIENT
  Age: 35 Year
  Sex: Female

DRUGS (2)
  1. TYSABRI [Suspect]
     Active Substance: NATALIZUMAB
     Indication: Multiple sclerosis
     Dosage: TYSABRI 300 MG IV. EACH 4 TO 6 WEEKS
     Route: 042
     Dates: start: 20210610
  2. Vigantol [Concomitant]
     Indication: Product used for unknown indication
     Route: 048

REACTIONS (5)
  - Abortion spontaneous [Recovered/Resolved]
  - Abortion missed [Recovered/Resolved]
  - Foetal growth restriction [Recovered/Resolved]
  - COVID-19 [Recovered/Resolved]
  - Maternal exposure during pregnancy [Recovered/Resolved]

NARRATIVE: CASE EVENT DATE: 20220217
